FAERS Safety Report 7547082-6 (Version None)
Quarter: 2011Q2

REPORT INFORMATION
  Report Type: 
  Country: None (occurrence: None)
  Receive Date: 20110524
  Receipt Date: 20110310
  Transmission Date: 20111010
  Serious: No
  Sender: FDA-Public Use
  Company Number: 027733

PATIENT
  Sex: Male
  Weight: 77 kg

DRUGS (4)
  1. M.V.I. [Concomitant]
  2. BLACKMORES VITAMIN C [Concomitant]
  3. ASPIRIN [Concomitant]
  4. CIMZIA [Suspect]
     Indication: CROHN'S DISEASE
     Dosage: (400 MG 1X/2 WEEKS SUBCUTANEOUS)
     Route: 058
     Dates: start: 20110112

REACTIONS (3)
  - FAECES DISCOLOURED [None]
  - HAEMATOCHEZIA [None]
  - GASTROENTERITIS VIRAL [None]
